FAERS Safety Report 4554611-3 (Version None)
Quarter: 2005Q1

REPORT INFORMATION
  Report Type: 
  Country: None (occurrence: None)
  Receive Date: 20050114
  Receipt Date: 20031023
  Transmission Date: 20050727
  Serious: Yes (Hospitalization, Disabling)
  Sender: FDA-Public Use
  Company Number: GXKR2003US00540

PATIENT
  Age: 18 Year
  Sex: Male

DRUGS (7)
  1. IBUPROFEN (NGX)(IBUPROFEN) SUSPENSION [Suspect]
     Indication: HEADACHE
     Dosage: 440 MG, ONCE/SINGLE, ORAL
     Route: 048
  2. GENTAMICIN [Suspect]
     Indication: LUNG DISORDER
     Dosage: 220 MG, Q12H, INTRAVENOUS
     Route: 042
  3. OXACILLIN [Concomitant]
  4. CEFTAZIDIME SODIUM [Concomitant]
  5. CO-TRIMOXAZOLE (CO-TRIMOXAZOLE) [Concomitant]
  6. MULTIVITAMIN [Concomitant]
  7. ENZYMES PREPARATIONS (PANCREATIC) [Concomitant]

REACTIONS (8)
  - ABDOMINAL PAIN [None]
  - DIARRHOEA [None]
  - DRUG INTERACTION [None]
  - HAEMODIALYSIS [None]
  - OTOTOXICITY [None]
  - RENAL FAILURE ACUTE [None]
  - RENAL TUBULAR NECROSIS [None]
  - VESTIBULAR DISORDER [None]
